FAERS Safety Report 9586221 (Version 1)
Quarter: 2013Q4

REPORT INFORMATION
  Report Type: Spontaneous
  Country: GB (occurrence: None)
  Receive Date: 20131001
  Receipt Date: 20131001
  Transmission Date: 20140711
  Serious: Yes (Life-Threatening, Hospitalization, Other)
  Sender: FDA-Public Use
  Company Number: GB-DEXPHARM-20130683

PATIENT
  Age: 51 Year
  Sex: 0

DRUGS (13)
  1. FERROUS SULPHATE [Concomitant]
  2. INSULATARD PORCINE [Concomitant]
  3. LISINOPRIL [Concomitant]
  4. OMEPRAZOLE [Concomitant]
  5. PORCINE ACTRAPID [Concomitant]
  6. SIMVASTATIN [Concomitant]
  7. COLCHICINE [Suspect]
     Indication: GOUT
     Dates: start: 20061026
  8. AMLODIPINE [Concomitant]
  9. ASPIRIN [Concomitant]
  10. ATENOLOL [Concomitant]
  11. BENDROFUMETHIAZIDE [Concomitant]
  12. BEZAFIBRATE [Concomitant]
  13. CO-DYDRAMOL [Concomitant]

REACTIONS (14)
  - Renal failure acute [None]
  - Diarrhoea [None]
  - Metabolic acidosis [None]
  - Pallor [None]
  - Weight decreased [None]
  - Medication error [None]
  - Drug dispensing error [None]
  - Dehydration [None]
  - Blood potassium increased [None]
  - Inflammatory marker increased [None]
  - Incorrect dose administered [None]
  - Blood pressure systolic increased [None]
  - Blood glucose increased [None]
  - Haemoglobin decreased [None]
